FAERS Safety Report 17811496 (Version 2)
Quarter: 2020Q2

REPORT INFORMATION
  Report Type: Spontaneous
  Country: US (occurrence: US)
  Receive Date: 20200521
  Receipt Date: 20200604
  Transmission Date: 20200714
  Serious: No
  Sender: FDA-Public Use
  Company Number: US-PFIZER INC-2020201096

PATIENT
  Age: 68 Year
  Sex: Male
  Weight: 89.36 kg

DRUGS (1)
  1. XELJANZ XR [Suspect]
     Active Substance: TOFACITINIB CITRATE
     Indication: RHEUMATOID ARTHRITIS
     Dosage: 11 MG ONCE A DAY
     Route: 048
     Dates: start: 202005

REACTIONS (1)
  - Drug ineffective [Unknown]
